FAERS Safety Report 19996906 (Version 1)
Quarter: 2021Q4

REPORT INFORMATION
  Report Type: Report from Study
  Country: FR (occurrence: FR)
  Receive Date: 20211025
  Receipt Date: 20211025
  Transmission Date: 20220303
  Serious: Yes (Hospitalization)
  Sender: FDA-Public Use
  Company Number: FR-PFIZER INC-202101355220

PATIENT
  Age: 66 Year
  Sex: Female
  Weight: 79 kg

DRUGS (10)
  1. BEVACIZUMAB [Suspect]
     Active Substance: BEVACIZUMAB
     Dosage: 700 MG, DAILY, DAY1
     Route: 042
     Dates: start: 20210506, end: 20210506
  2. INSULIN NOS [Concomitant]
     Active Substance: INSULIN NOS
     Indication: Diabetes mellitus management
     Dosage: 2 IU, DAILY
     Route: 058
     Dates: start: 20210425, end: 20210518
  3. LANTUS [Concomitant]
     Active Substance: INSULIN GLARGINE
     Indication: Diabetes mellitus management
     Dosage: 24 IU, DAILY
     Route: 058
     Dates: start: 20210427, end: 20210520
  4. ACETAMINOPHEN [Concomitant]
     Active Substance: ACETAMINOPHEN
     Indication: Pain prophylaxis
     Dosage: 1000 MG, DAILY
     Route: 041
     Dates: start: 20210424, end: 20210424
  5. URAPIDIL HYDROCHLORIDE [Concomitant]
     Active Substance: URAPIDIL HYDROCHLORIDE
     Indication: Hypertension
     Dosage: 90 MG, DAILY
     Route: 048
     Dates: start: 20210427, end: 20210505
  6. FUROSEMIDE [Concomitant]
     Active Substance: FUROSEMIDE
     Indication: Hypertension
     Dosage: 40 MG, DAILY
     Route: 042
     Dates: start: 20210430, end: 20210430
  7. AMLODIPINE BESYLATE [Concomitant]
     Active Substance: AMLODIPINE BESYLATE
     Indication: Hypertension
     Dosage: 10 MG
     Route: 048
     Dates: start: 20210425
  8. LANSOPRAZOLE [Concomitant]
     Active Substance: LANSOPRAZOLE
     Indication: Prophylaxis
     Dosage: 30 MG, DAILY
     Route: 048
     Dates: start: 20210505, end: 20210524
  9. IRBESARTAN [Concomitant]
     Active Substance: IRBESARTAN
     Indication: Hypertension
     Dosage: 300 MG, DAILY
     Route: 048
     Dates: start: 20210505
  10. ALGINATE DE SODIUM/BICARBONATE DE SODIUM [Concomitant]
     Indication: Prophylaxis
     Dosage: 1 DF, DAILY
     Route: 048
     Dates: start: 20210505, end: 20210521

REACTIONS (2)
  - Pyelonephritis [Recovered/Resolved]
  - Pyrexia [Recovered/Resolved]

NARRATIVE: CASE EVENT DATE: 20210511
